FAERS Safety Report 10967337 (Version 1)
Quarter: 2015Q1

REPORT INFORMATION
  Report Type: Spontaneous
  Country: GB (occurrence: GB)
  Receive Date: 20150330
  Receipt Date: 20150330
  Transmission Date: 20150721
  Serious: Yes (Other)
  Sender: FDA-Public Use
  Company Number: GB-PFIZER INC-2015105520

PATIENT
  Age: 48 Year
  Sex: Female

DRUGS (2)
  1. DEPO-MEDRONE [Suspect]
     Active Substance: METHYLPREDNISOLONE
     Dosage: 30 MG, UNK
     Route: 030
     Dates: start: 20150206, end: 20150206
  2. LIDOCAINE. [Suspect]
     Active Substance: LIDOCAINE
     Dosage: 2 ML, UNK
     Route: 030
     Dates: start: 20150206, end: 20150206

REACTIONS (3)
  - Swollen tongue [Recovered/Resolved]
  - Rash [Recovered/Resolved]
  - Pruritus [Recovered/Resolved]

NARRATIVE: CASE EVENT DATE: 20150206
